FAERS Safety Report 9904864 (Version 1)
Quarter: 2014Q1

REPORT INFORMATION
  Report Type: Spontaneous
  Country: CN (occurrence: CN)
  Receive Date: 20140218
  Receipt Date: 20140218
  Transmission Date: 20141002
  Serious: Yes (Death)
  Sender: FDA-Public Use
  Company Number: CN-PFIZER INC-2014040657

PATIENT
  Age: 78 Year
  Sex: Female

DRUGS (1)
  1. TAZOCIN [Suspect]
     Indication: LUNG INFECTION
     Dosage: UNK
     Route: 041

REACTIONS (3)
  - Leukopenia [Fatal]
  - Thrombocytopenia [Fatal]
  - Erythropenia [Fatal]
